FAERS Safety Report 6669496-9 (Version None)
Quarter: 2010Q2

REPORT INFORMATION
  Report Type: 
  Country: None (occurrence: None)
  Receive Date: 20100406
  Receipt Date: 20100329
  Transmission Date: 20101027
  Serious: Yes (Disabling, Other)
  Sender: FDA-Public Use
  Company Number: PHHY2010US20372

PATIENT
  Sex: Male

DRUGS (5)
  1. CLOZARIL [Suspect]
     Dosage: 100 MG, HS
     Route: 048
  2. CLOZAPINE [Suspect]
     Dosage: 2 DF, QAM
     Route: 048
  3. DIVALPROEX SODIUM [Concomitant]
     Dosage: 1 DF, BID
     Route: 048
  4. LITHIUM [Concomitant]
     Dosage: 1 DF, BID
     Route: 048
  5. VYVANSE [Concomitant]
     Dosage: 1 DF, BID
     Route: 048

REACTIONS (2)
  - HYPERVENTILATION [None]
  - TARDIVE DYSKINESIA [None]
